FAERS Safety Report 5407980-6 (Version None)
Quarter: 2007Q3

REPORT INFORMATION
  Report Type: 
  Country: None (occurrence: None)
  Receive Date: 20070803
  Receipt Date: 20070720
  Transmission Date: 20080115
  Serious: Yes (Death, Other)
  Sender: FDA-Public Use
  Company Number: URSO-2007-130

PATIENT
  Age: 62 Year
  Sex: Male

DRUGS (1)
  1. URSO 250 [Suspect]
     Indication: BILIARY CIRRHOSIS PRIMARY
     Dosage: 600 MG ORAL
     Route: 048
     Dates: start: 20030811, end: 20060522

REACTIONS (4)
  - ACUTE LYMPHOCYTIC LEUKAEMIA [None]
  - ALKALOSIS [None]
  - HYPERCALCAEMIA [None]
  - HYPOKALAEMIA [None]
